FAERS Safety Report 12581496 (Version 7)
Quarter: 2017Q2

REPORT INFORMATION
  Report Type: Report from Study
  Country: JP (occurrence: JP)
  Receive Date: 20160721
  Receipt Date: 20170406
  Transmission Date: 20170830
  Serious: Yes (Death, Life-Threatening, Other)
  Sender: FDA-Public Use
  Company Number: JP-ALXN-A201605322AA

PATIENT
  Age: 12 Day
  Sex: Female
  Weight: 2.6 kg

DRUGS (35)
  1. INOVAN                             /00360702/ [Concomitant]
     Dosage: 20 MG, QD
     Route: 041
     Dates: start: 20160702, end: 20160710
  2. MILRILA [Concomitant]
     Active Substance: MILRINONE
     Dosage: 2 MG, QD
     Route: 041
     Dates: start: 20160430, end: 20160502
  3. FLOLAN [Concomitant]
     Active Substance: EPOPROSTENOL SODIUM
     Indication: PULMONARY HYPERTENSION
     Dosage: 30 MG, QD
     Route: 041
     Dates: start: 20160428, end: 20160502
  4. SPIRONOLACTONE. [Concomitant]
     Active Substance: SPIRONOLACTONE
     Indication: OLIGURIA
     Dosage: 1.25 MG, BID
     Route: 048
     Dates: start: 20160509, end: 20160617
  5. INOVAN                             /00360702/ [Concomitant]
     Indication: PULMONARY HYPERTENSION
     Dosage: 18 MG, QD
     Route: 041
     Dates: start: 20160427, end: 20160502
  6. VECURONIUM [Concomitant]
     Active Substance: VECURONIUM BROMIDE
     Indication: SEDATION
     Dosage: 0.6 MG, QD
     Route: 041
     Dates: start: 20160427, end: 20160501
  7. MILRILA [Concomitant]
     Active Substance: MILRINONE
     Dosage: 3 MG, QD
     Route: 041
     Dates: start: 20160707, end: 20160710
  8. GASTER [Concomitant]
     Active Substance: FAMOTIDINE
     Indication: PROPHYLAXIS
     Dosage: 2 MG, QD
     Route: 041
     Dates: start: 20160706, end: 20160710
  9. STRENSIQ [Suspect]
     Active Substance: ASFOTASE ALFA
     Indication: HYPOPHOSPHATASIA
     Dosage: 6 MG, TIW
     Route: 058
     Dates: start: 20160428, end: 20160708
  10. INOVAN                             /00360702/ [Concomitant]
     Indication: HYPOTENSION
     Dosage: 12 MG, QD
     Route: 041
     Dates: start: 20160625, end: 20160626
  11. VECURONIUM [Concomitant]
     Active Substance: VECURONIUM BROMIDE
     Dosage: 0.5 MG, SINGLE
     Route: 042
     Dates: start: 20160621, end: 20160621
  12. VECURONIUM [Concomitant]
     Active Substance: VECURONIUM BROMIDE
     Dosage: 6 MG, QD
     Route: 041
     Dates: start: 20160622, end: 20160710
  13. FLOLAN [Concomitant]
     Active Substance: EPOPROSTENOL SODIUM
     Dosage: 30 MG, QD
     Route: 041
     Dates: start: 20160625, end: 20160710
  14. FUROSEMIDE. [Concomitant]
     Active Substance: FUROSEMIDE
     Indication: OLIGURIA
     Dosage: 3 MG, BID
     Route: 041
     Dates: start: 20160430, end: 20160509
  15. DOBUTREX [Concomitant]
     Active Substance: DOBUTAMINE HYDROCHLORIDE
     Dosage: 24 MG, QD
     Route: 041
     Dates: start: 20160625, end: 20160626
  16. FUROSEMIDE. [Concomitant]
     Active Substance: FUROSEMIDE
     Dosage: 4 MG, BID
     Route: 048
     Dates: start: 20160704, end: 20160710
  17. PYDOXAL [Concomitant]
     Active Substance: PYRIDOXAL
     Dosage: 10 MG, QD
     Route: 048
     Dates: start: 20160520, end: 20160527
  18. FENTANYL. [Concomitant]
     Active Substance: FENTANYL
     Indication: SEDATION
     Dosage: 0.2 MG, QD
     Route: 041
     Dates: start: 20160621, end: 20160710
  19. FUROSEMIDE. [Concomitant]
     Active Substance: FUROSEMIDE
     Dosage: 1.25 MG, BID
     Route: 048
     Dates: start: 20160509, end: 20160617
  20. PYDOXAL [Concomitant]
     Active Substance: PYRIDOXAL
     Dosage: 20 MG, QD
     Route: 048
     Dates: start: 20160513, end: 20160519
  21. SPIRONOLACTONE. [Concomitant]
     Active Substance: SPIRONOLACTONE
     Dosage: 4 MG, BID
     Route: 048
     Dates: start: 20160704, end: 20160710
  22. REVATIO [Concomitant]
     Active Substance: SILDENAFIL CITRATE
     Dosage: 1.5 MG, QID
     Route: 048
     Dates: start: 20160620, end: 20160624
  23. REVATIO [Concomitant]
     Active Substance: SILDENAFIL CITRATE
     Dosage: 2.5 MG, QID
     Route: 048
     Dates: start: 20160624, end: 20160627
  24. CEFAZOLIN SODIUM. [Concomitant]
     Active Substance: CEFAZOLIN SODIUM
     Indication: INFECTION PROPHYLAXIS
     Dosage: 100 MG, SINGLE
     Route: 042
     Dates: start: 20160621, end: 20160621
  25. FENTANYL. [Concomitant]
     Active Substance: FENTANYL
     Indication: ANALGESIC THERAPY
     Dosage: 0.2 MG, QD
     Route: 041
     Dates: start: 20160427, end: 20160505
  26. DOBUTREX [Concomitant]
     Active Substance: DOBUTAMINE HYDROCHLORIDE
     Indication: PULMONARY HYPERTENSION
     Dosage: 40 MG, QD
     Route: 041
     Dates: start: 20160427, end: 20160430
  27. PYDOXAL [Concomitant]
     Active Substance: PYRIDOXAL
     Indication: SEIZURE
     Dosage: 30 MG, QD
     Route: 048
     Dates: start: 20160503, end: 20160512
  28. MIDAZOLAM [Concomitant]
     Active Substance: MIDAZOLAM HYDROCHLORIDE
     Indication: SEDATION
     Dosage: 10 MG, QD
     Route: 041
     Dates: start: 20160621, end: 20160624
  29. MIDAZOLAM [Concomitant]
     Active Substance: MIDAZOLAM HYDROCHLORIDE
     Dosage: 10 MG, QD
     Route: 041
     Dates: start: 20160706, end: 20160710
  30. TRACLEER [Concomitant]
     Active Substance: BOSENTAN
     Indication: PULMONARY HYPERTENSION
     Dosage: 1 MG, BID (ALSO REPORTED 0.5 MG/KG)
     Route: 048
     Dates: start: 20160704, end: 20160710
  31. MILRILA [Concomitant]
     Active Substance: MILRINONE
     Indication: PULMONARY HYPERTENSION
     Dosage: 2 MG, QD
     Route: 041
     Dates: start: 20160427, end: 20160428
  32. REVATIO [Concomitant]
     Active Substance: SILDENAFIL CITRATE
     Indication: PULMONARY HYPERTENSION
     Dosage: 0.5 MG, QID
     Route: 048
     Dates: start: 20160614, end: 20160620
  33. REVATIO [Concomitant]
     Active Substance: SILDENAFIL CITRATE
     Dosage: 3 MG, QID
     Route: 048
     Dates: start: 20160627, end: 20160710
  34. PYDOXAL [Concomitant]
     Active Substance: PYRIDOXAL
     Dosage: 30 MG, TID
     Route: 048
     Dates: start: 20160627, end: 20160710
  35. PYRIDOXINE HYDROCHLORIDE. [Concomitant]
     Active Substance: PYRIDOXINE HYDROCHLORIDE
     Indication: PRODUCT USED FOR UNKNOWN INDICATION
     Route: 065

REACTIONS (7)
  - Pneumonia [Fatal]
  - Asthma [Fatal]
  - Diarrhoea [Recovered/Resolved]
  - Iron deficiency anaemia [Recovering/Resolving]
  - Lung disorder [Fatal]
  - Device related infection [Recovering/Resolving]
  - Sepsis [Fatal]

NARRATIVE: CASE EVENT DATE: 20160509
